FAERS Safety Report 7939746-7 (Version None)
Quarter: 2011Q4

REPORT INFORMATION
  Report Type: 
  Country: None (occurrence: None)
  Receive Date: 20111125
  Receipt Date: 20111121
  Transmission Date: 20120403
  Serious: Yes (Life-Threatening)
  Sender: FDA-Public Use
  Company Number: PHHY2011AU66641

PATIENT
  Sex: Female

DRUGS (2)
  1. CERTICAN [Suspect]
     Indication: IDIOPATHIC PULMONARY FIBROSIS
     Dosage: 0.1 MG, BID
     Route: 048
     Dates: start: 20030101, end: 20050101
  2. CERTICAN [Suspect]
     Dosage: 0.1 MG, BID
     Route: 048
     Dates: start: 20050101, end: 20060301

REACTIONS (3)
  - INTRACRANIAL ANEURYSM [None]
  - RESPIRATORY GAS EXCHANGE DISORDER [None]
  - IDIOPATHIC PULMONARY FIBROSIS [None]
